FAERS Safety Report 4915037-3 (Version None)
Quarter: 2006Q1

REPORT INFORMATION
  Report Type: 
  Country: None (occurrence: None)
  Receive Date: 20060215
  Receipt Date: 20060215
  Transmission Date: 20060701
  Serious: Yes (Hospitalization)
  Sender: FDA-Public Use
  Company Number: None

PATIENT
  Age: 83 Year
  Sex: Female

DRUGS (2)
  1. WARFARIN   2MG [Suspect]
     Indication: AORTIC VALVE REPLACEMENT
     Dosage: 2MG  DAILY  PO  (THERAPY DATES:   SINCE 1970S?)
     Route: 048
  2. WARFARIN   2MG [Suspect]
     Indication: ATRIAL FIBRILLATION
     Dosage: 2MG  DAILY  PO  (THERAPY DATES:   SINCE 1970S?)
     Route: 048

REACTIONS (2)
  - INTERNATIONAL NORMALISED RATIO INCREASED [None]
  - PETECHIAE [None]
